FAERS Safety Report 25537885 (Version 1)
Quarter: 2025Q3

REPORT INFORMATION
  Report Type: Spontaneous
  Country: JP (occurrence: JP)
  Receive Date: 20250710
  Receipt Date: 20250710
  Transmission Date: 20251020
  Serious: Yes (Death, Hospitalization)
  Sender: SPECGX
  Company Number: JP-SPECGX-T202501205

PATIENT
  Age: 8 Decade
  Sex: Male

DRUGS (1)
  1. METHADONE [Suspect]
     Active Substance: METHADONE HYDROCHLORIDE
     Indication: Cancer pain
     Dosage: 15 MILLIGRAM, QD
     Route: 048

REACTIONS (6)
  - Transitional cell carcinoma [Fatal]
  - Malignant neoplasm progression [Fatal]
  - Ileus paralytic [Unknown]
  - Condition aggravated [Unknown]
  - Somnolence [Unknown]
  - Nausea [Unknown]
